FAERS Safety Report 14309361 (Version 2)
Quarter: 2018Q1

REPORT INFORMATION
  Report Type: Spontaneous
  Country: BR (occurrence: BR)
  Receive Date: 20171220
  Receipt Date: 20180327
  Transmission Date: 20180509
  Serious: Yes (Other)
  Sender: FDA-Public Use
  Company Number: BR-ABBVIE-17P-020-2183446-00

PATIENT
  Sex: Female
  Weight: 15.5 kg

DRUGS (8)
  1. GARDENAL [Concomitant]
     Active Substance: PHENOBARBITAL
     Indication: EPILEPSY
     Dosage: 60 DROP (20 DROPS IN THE MORNING / 40 DROPS AT NIGHT)
     Route: 048
  2. DEPAKOTE [Suspect]
     Active Substance: DIVALPROEX SODIUM
     Dosage: 6 CAPSULE (2 CAPSULES IN THE MORNING / AT THE AFTERNOON / AT NIGHT)
     Route: 065
     Dates: start: 201803
  3. DEPAKENE [Suspect]
     Active Substance: VALPROIC ACID
     Indication: EPILEPSY
     Route: 065
  4. DIAZEPAM. [Concomitant]
     Active Substance: DIAZEPAM
     Indication: EPILEPSY
     Route: 065
  5. DEPAKOTE [Suspect]
     Active Substance: DIVALPROEX SODIUM
     Indication: IDIOPATHIC GENERALISED EPILEPSY
     Dosage: 2 CAPSULES IN THE MORNING / 1 CAPSULE AT THE AFTERNOON / 2 CAPSULES AT NIGHT
     Route: 048
     Dates: start: 2017
  6. GARDENAL [Concomitant]
     Active Substance: PHENOBARBITAL
     Dates: start: 201803
  7. KEPPRA [Concomitant]
     Active Substance: LEVETIRACETAM
     Indication: EPILEPSY
     Dosage: 9 ML; 4.5 ML IN THE MORNING/AT NIGHT
     Route: 048
  8. FRISIUM [Concomitant]
     Active Substance: CLOBAZAM
     Indication: EPILEPSY
     Dosage: 15 MG; 0.5 TABLET IN THE MORNING / 1 TABLET AT NIGHT - UNKNOWN FORM STRENGTH
     Route: 048

REACTIONS (5)
  - Hypercholesterolaemia [Not Recovered/Not Resolved]
  - Epilepsy [Recovering/Resolving]
  - Product use issue [Unknown]
  - Off label use [Unknown]
  - Eye irritation [Recovered/Resolved]

NARRATIVE: CASE EVENT DATE: 2017
